FAERS Safety Report 18537541 (Version 1)
Quarter: 2020Q4

REPORT INFORMATION
  Report Type: Spontaneous
  Country: US (occurrence: US)
  Receive Date: 20201123
  Receipt Date: 20201123
  Transmission Date: 20210114
  Serious: No
  Sender: FDA-Public Use
  Company Number: US-PERRIGO-20US012527

PATIENT
  Age: 72 Year
  Sex: Female
  Weight: 61.45 kg

DRUGS (2)
  1. ESTRADIOL. [Concomitant]
     Active Substance: ESTRADIOL
     Indication: HORMONE REPLACEMENT THERAPY
     Dosage: UNK
     Route: 061
     Dates: start: 1987
  2. POLYETHYLENE GLYCOL 3350. [Suspect]
     Active Substance: POLYETHYLENE GLYCOL 3350
     Indication: CONSTIPATION
     Dosage: 17 G, QD
     Route: 048
     Dates: start: 202002, end: 202008

REACTIONS (5)
  - Dry mouth [Not Recovered/Not Resolved]
  - Incorrect product administration duration [Recovered/Resolved]
  - Condition aggravated [Not Recovered/Not Resolved]
  - Abnormal faeces [Recovered/Resolved]
  - Faecal volume decreased [Recovered/Resolved]

NARRATIVE: CASE EVENT DATE: 202002
